FAERS Safety Report 9307919 (Version 1)
Quarter: 2013Q2

REPORT INFORMATION
  Report Type: Report from Study
  Country: CN (occurrence: CN)
  Receive Date: 20130524
  Receipt Date: 20130524
  Transmission Date: 20140414
  Serious: Yes (Other)
  Sender: FDA-Public Use
  Company Number: CN-ROCHE-1228558

PATIENT
  Sex: Female

DRUGS (2)
  1. CELLCEPT [Suspect]
     Indication: RENAL TRANSPLANT
     Route: 048
     Dates: start: 20061120
  2. CYCLOSPORINE A [Concomitant]
     Indication: RENAL TRANSPLANT
     Route: 048
     Dates: start: 20061120

REACTIONS (1)
  - Complications of transplanted kidney [Not Recovered/Not Resolved]
